FAERS Safety Report 8388062-0 (Version None)
Quarter: 2012Q2

REPORT INFORMATION
  Report Type: 
  Country: None (occurrence: None)
  Receive Date: 20120525
  Receipt Date: 20120518
  Transmission Date: 20120825
  Serious: Yes (Other)
  Sender: FDA-Public Use
  Company Number: US-ABBOTT-12P-163-0936812-00

PATIENT
  Age: 63 Year
  Sex: Male

DRUGS (9)
  1. HUMIRA [Suspect]
     Indication: RHEUMATOID ARTHRITIS
     Dates: start: 20090101
  2. LIALDA [Concomitant]
     Indication: COLITIS
  3. ANTI GAS MEDICATION [Concomitant]
     Indication: COLITIS
  4. HUMIRA [Suspect]
     Indication: COLITIS
  5. HUMIRA [Suspect]
     Dates: start: 20120518
  6. LEPSIN [Concomitant]
     Indication: COLITIS
  7. HUMIRA [Suspect]
     Indication: RHEUMATOID ARTHRITIS
     Dosage: LOADING DOSE
     Dates: start: 20120503, end: 20120503
  8. LANTUS [Concomitant]
     Indication: DIABETES MELLITUS
     Dosage: IN MORNING
  9. HUMALOG [Concomitant]
     Indication: DIABETES MELLITUS
     Dosage: SLIDING SCALE THE REMAINDER OF THE DAY

REACTIONS (2)
  - CORONARY ARTERY OCCLUSION [None]
  - PSORIASIS [None]
